FAERS Safety Report 9855681 (Version 1)
Quarter: 2014Q1

REPORT INFORMATION
  Report Type: Spontaneous
  Country: US (occurrence: US)
  Receive Date: 20140130
  Receipt Date: 20140130
  Transmission Date: 20141002
  Serious: No
  Sender: FDA-Public Use
  Company Number: 2014SP000188

PATIENT
  Sex: Female

DRUGS (5)
  1. LATUDA [Suspect]
     Indication: BIPOLAR I DISORDER
     Route: 048
  2. LATUDA [Suspect]
     Indication: BIPOLAR I DISORDER
     Route: 048
  3. LATUDA [Suspect]
     Indication: BIPOLAR I DISORDER
     Route: 048
  4. LATUDA [Suspect]
     Indication: BIPOLAR I DISORDER
     Route: 048
  5. LATUDA [Suspect]
     Indication: BIPOLAR I DISORDER
     Route: 048

REACTIONS (1)
  - Swelling face [Unknown]
